FAERS Safety Report 13358197 (Version 14)
Quarter: 2022Q4

REPORT INFORMATION
  Report Type: Spontaneous
  Country: AU (occurrence: AU)
  Receive Date: 20170322
  Receipt Date: 20221219
  Transmission Date: 20230112
  Serious: Yes (Life-Threatening, Hospitalization, Disabling, Other)
  Sender: FDA-Public Use
  Company Number: AU-002147023-PHHY2017AU038301

PATIENT
  Age: 74 Year
  Sex: Male
  Weight: 80 kg

DRUGS (8)
  1. LUCENTIS [Suspect]
     Active Substance: RANIBIZUMAB
     Indication: Macular degeneration
     Dosage: INJECTION SOLUTION IN SYRINGE 1.65 MG
     Route: 065
     Dates: start: 201608, end: 201708
  2. LUCENTIS [Suspect]
     Active Substance: RANIBIZUMAB
     Dosage: 0.5 MG, (PREFILLED SYRINGE, STRENGTH WAS 0.5 MG/0.05 ML IN RIGHT EYE)
     Route: 050
     Dates: start: 20160810
  3. LUCENTIS [Suspect]
     Active Substance: RANIBIZUMAB
     Route: 065
     Dates: start: 20161123
  4. LUCENTIS [Suspect]
     Active Substance: RANIBIZUMAB
     Route: 065
     Dates: start: 2017
  5. LUCENTIS [Suspect]
     Active Substance: RANIBIZUMAB
     Route: 065
     Dates: start: 20170303
  6. LUCENTIS [Suspect]
     Active Substance: RANIBIZUMAB
     Dosage: (INJECTION IN LEFT EYE)
     Route: 065
     Dates: start: 20170503
  7. LUCENTIS [Suspect]
     Active Substance: RANIBIZUMAB
     Dosage: UNK, (STRENGTH WAS 10 MILLIGRAM PER MILLILITER RIGHT EYE, VIAL AND PFS)
     Route: 050
  8. LUCENTIS [Suspect]
     Active Substance: RANIBIZUMAB
     Dosage: NK, (2 MORE TO THE RIGHT AND 1 TO THE LEFT)
     Route: 065

REACTIONS (39)
  - Road traffic accident [Unknown]
  - Eye infection [Unknown]
  - Ocular hyperaemia [Unknown]
  - Dry eye [Unknown]
  - Retinal tear [Unknown]
  - Retinal exudates [Unknown]
  - Gastric cancer [Not Recovered/Not Resolved]
  - Hypertension [Unknown]
  - Diverticulitis [Unknown]
  - Eye abscess [Unknown]
  - Cataract [Unknown]
  - Macular degeneration [Unknown]
  - Blindness unilateral [Not Recovered/Not Resolved]
  - Lung cyst [Not Recovered/Not Resolved]
  - Renal disorder [Not Recovered/Not Resolved]
  - Lipoma [Not Recovered/Not Resolved]
  - Vitreous floaters [Not Recovered/Not Resolved]
  - Gynaecomastia [Unknown]
  - Depression [Unknown]
  - Gastrooesophageal reflux disease [Unknown]
  - Benign prostatic hyperplasia [Unknown]
  - Back pain [Unknown]
  - Feeling abnormal [Unknown]
  - Dental discomfort [Unknown]
  - Infection [Unknown]
  - Scar [Unknown]
  - Vitamin B12 abnormal [Unknown]
  - Insomnia [Unknown]
  - Arthropathy [Unknown]
  - Blood cholesterol increased [Unknown]
  - Injection site pain [Unknown]
  - Pruritus [Unknown]
  - Vision blurred [Unknown]
  - Photophobia [Unknown]
  - Eye pain [Unknown]
  - Inappropriate schedule of product administration [Unknown]
  - Product administration error [Unknown]
  - Off label use [Unknown]
  - Retinal pigment epithelial tear [Unknown]
